FAERS Safety Report 9866867 (Version 1)
Quarter: 2014Q1

REPORT INFORMATION
  Report Type: Spontaneous
  Country: US (occurrence: None)
  Receive Date: 20140131
  Receipt Date: 20140131
  Transmission Date: 20141002
  Serious: Yes (Hospitalization, Other)
  Sender: FDA-Public Use
  Company Number: KAD201401-000071

PATIENT
  Age: 54 Year
  Sex: Female
  Weight: 100.3 kg

DRUGS (29)
  1. RIBAVIRIN (RIBAVIRIN) [Suspect]
     Route: 048
     Dates: start: 20131206, end: 20131229
  2. SOFOSBUVIR / LEDIPASVIR [Suspect]
     Route: 048
     Dates: start: 20131206, end: 20131225
  3. SEROQUEL (QUETIAPINE FUMARATE) [Concomitant]
  4. FUROSEMIDE (FUROSEMIDE) [Concomitant]
  5. SILVER SULFADIAZINE (SILVER SULFADIAZINE) [Concomitant]
  6. SPIRONOLACTONE (SPIRONOLACTONE) [Concomitant]
  7. XIFAXIN (RIFAXIMIN) [Concomitant]
  8. ACETAMINOPHEN (ACETAMINOPHEN) [Concomitant]
  9. NEXIUM (ESOMEPRAZOLE MAGNESIUM) [Concomitant]
  10. INSULIN (INSULIN) [Concomitant]
  11. OMINIPAQUE (OMNIPAQUE) [Concomitant]
  12. HUMALOG (INSULIN LISPRO) [Concomitant]
  13. MAGNESIUM OXIDE (MAGNESIUM OXIDE) [Concomitant]
  14. METRONIDAZOLE (METRONIDAZOLE) [Concomitant]
  15. MORPHINE (MORPHINE) [Concomitant]
  16. PHYTONADIONE (PHYTONADIONE) [Concomitant]
  17. SUCRALFATE (SUCRALFATE) UNKNOWN [Concomitant]
  18. VANCOMYCIN (VANCOMYCIN) [Concomitant]
  19. LANTUS (INSULIN GLARGINE) [Concomitant]
  20. METHYLPHENIDATE HYDROCHLORIDE (METHYLPHENIDATE HYDROCHLORIDE) [Concomitant]
  21. OXYCODONE HYDROCHLORIDE (OXYCODONE HYDROCHLORIDE) [Concomitant]
  22. PREDNISONE (PREDNISONE) [Concomitant]
  23. PROPRANOLOL (PROPRANOLOL) [Concomitant]
  24. RANITIDINE HYDROCHLORIDE (RANITIDINE HYDROCHLORIDE) [Concomitant]
  25. AZITHRO (AZITHRO) [Concomitant]
  26. KEFLEX (CEPHALEXIN) [Concomitant]
  27. LEVAQUIN (LEVOFLOXACIN HYDROCHLORIDE) [Concomitant]
  28. RRIFAXIMIN (RIFAXIMIN) [Concomitant]
  29. ZOSYN (PIPERACILLIN, TAZOBACTAM) [Concomitant]

REACTIONS (11)
  - Abdominal pain [None]
  - Urinary tract infection enterococcal [None]
  - Colitis [None]
  - Atelectasis [None]
  - Pneumonia klebsiella [None]
  - Nausea [None]
  - Diarrhoea [None]
  - Productive cough [None]
  - Pneumonia [None]
  - Respiratory syncytial virus test positive [None]
  - Colitis [None]
